FAERS Safety Report 10158417 (Version 1)
Quarter: 2014Q2

REPORT INFORMATION
  Report Type: Spontaneous
  Country: US (occurrence: US)
  Receive Date: 20140507
  Receipt Date: 20140507
  Transmission Date: 20141212
  Serious: No
  Sender: FDA-Public Use
  Company Number: US-009507513-1405USA002498

PATIENT
  Sex: Female

DRUGS (2)
  1. AFRIN [Suspect]
     Indication: ALLERGIC SINUSITIS
     Dosage: UNK, UNKNOWN
     Route: 045
  2. AFRIN [Suspect]
     Indication: NASAL CONGESTION

REACTIONS (1)
  - Drug ineffective [Unknown]
